FAERS Safety Report 5103262-0 (Version None)
Quarter: 2006Q3

REPORT INFORMATION
  Report Type: 
  Country: None (occurrence: None)
  Receive Date: 20060913
  Receipt Date: 20060905
  Transmission Date: 20061208
  Serious: Yes (Hospitalization)
  Sender: FDA-Public Use
  Company Number: 2006CG01459

PATIENT
  Age: 85 Year
  Sex: Male
  Weight: 72 kg

DRUGS (12)
  1. NEXIUM [Suspect]
     Route: 048
     Dates: end: 20060811
  2. ATENOLOL [Suspect]
     Route: 048
     Dates: end: 20060811
  3. ASPIRIN [Suspect]
     Route: 048
     Dates: end: 20060811
  4. REMINYL [Suspect]
     Route: 048
     Dates: end: 20060809
  5. TRIATEC [Suspect]
     Route: 048
     Dates: end: 20060809
  6. BRICANYL [Concomitant]
  7. EQUANIL [Concomitant]
     Route: 048
  8. IMOVANE [Concomitant]
  9. FORLAX [Concomitant]
  10. VENTOLIN [Concomitant]
  11. LASILIX [Concomitant]
  12. INSULINE RETARD [Concomitant]

REACTIONS (8)
  - DEHYDRATION [None]
  - ELECTROCARDIOGRAM DELTA WAVES ABNORMAL [None]
  - ELECTROENCEPHALOGRAM ABNORMAL [None]
  - ESCHAR [None]
  - PLATELET COUNT DECREASED [None]
  - PURPURA [None]
  - RENAL FAILURE [None]
  - SYSTEMIC INFLAMMATORY RESPONSE SYNDROME [None]
